FAERS Safety Report 25281903 (Version 1)
Quarter: 2025Q2

REPORT INFORMATION
  Report Type: Spontaneous
  Country: US (occurrence: US)
  Receive Date: 20250508
  Receipt Date: 20250508
  Transmission Date: 20250716
  Serious: Yes (Other)
  Sender: AMGEN
  Company Number: US-AMGEN-USASP2025087091

PATIENT
  Sex: Female

DRUGS (2)
  1. KRYSTEXXA [Suspect]
     Active Substance: PEGLOTICASE
     Indication: Product used for unknown indication
     Route: 065
     Dates: start: 20220701
  2. KRYSTEXXA [Suspect]
     Active Substance: PEGLOTICASE
     Route: 065
     Dates: start: 20230401, end: 20230401

REACTIONS (1)
  - Brain neoplasm [Unknown]
